FAERS Safety Report 9274446 (Version 3)
Quarter: 2019Q2

REPORT INFORMATION
  Report Type: Report from Study
  Country: DE (occurrence: DE)
  Receive Date: 20130506
  Receipt Date: 20190509
  Transmission Date: 20190711
  Serious: Yes (Hospitalization, Other)
  Sender: FDA-Public Use
  Company Number: DE-ROCHE-1221460

PATIENT
  Age: 75 Year
  Sex: Female
  Weight: 92 kg

DRUGS (15)
  1. PACLITAXEL. [Suspect]
     Active Substance: PACLITAXEL
     Route: 065
     Dates: start: 20130404, end: 20130905
  2. PANTOPRAZOLE [Concomitant]
     Active Substance: PANTOPRAZOLE
     Route: 048
  3. PACLITAXEL. [Suspect]
     Active Substance: PACLITAXEL
     Indication: BREAST CANCER
     Route: 065
  4. MIRTAZAPIN [Concomitant]
     Active Substance: MIRTAZAPINE
     Route: 048
     Dates: start: 2013
  5. ZOPLICONE [Concomitant]
     Active Substance: ZOPICLONE
     Indication: SLEEP DISORDER
     Dosage: AT NIGHT TIME
     Route: 048
     Dates: start: 20150609
  6. BEVACIZUMAB. [Suspect]
     Active Substance: BEVACIZUMAB
     Indication: BREAST CANCER
     Route: 065
  7. BEVACIZUMAB. [Suspect]
     Active Substance: BEVACIZUMAB
     Route: 065
     Dates: start: 20130404
  8. VERGENTAN [Concomitant]
     Active Substance: ALIZAPRIDE HYDROCHLORIDE
     Route: 048
     Dates: start: 2013
  9. TAVOR (LORAZEPAM) [Concomitant]
     Active Substance: LORAZEPAM
     Route: 048
     Dates: start: 2013
  10. LAXANS [BISACODYL] [Concomitant]
     Route: 048
     Dates: start: 2013
  11. PACLITAXEL. [Suspect]
     Active Substance: PACLITAXEL
     Dosage: SUBSEQUENT DOSE RECEIVED ON 26/SEP/2013, 04/OCT/2013, 17/OCT/2013, 24/OCT/2013 AND 31/OCT/2013.
     Route: 042
     Dates: start: 20130919
  12. NOVAMINSULFON [Concomitant]
     Active Substance: METAMIZOLE
     Route: 048
     Dates: start: 20140213
  13. METOPROLOL. [Concomitant]
     Active Substance: METOPROLOL
     Route: 065
     Dates: start: 20080101
  14. SPIRONOLACTONE. [Concomitant]
     Active Substance: SPIRONOLACTONE
     Route: 048
     Dates: start: 20140801
  15. LISINOPRIL. [Concomitant]
     Active Substance: LISINOPRIL
     Route: 065
     Dates: start: 20080101

REACTIONS (5)
  - Pleural effusion [Unknown]
  - Dyspnoea [Unknown]
  - Rectal haemorrhage [Recovered/Resolved]
  - Pleural effusion [Recovered/Resolved]
  - Dyspnoea at rest [Recovered/Resolved]

NARRATIVE: CASE EVENT DATE: 20130423
